FAERS Safety Report 8015389-4 (Version None)
Quarter: 2011Q4

REPORT INFORMATION
  Report Type: 
  Country: None (occurrence: None)
  Receive Date: 20111230
  Receipt Date: 20111222
  Transmission Date: 20120403
  Serious: Yes (Death, Hospitalization)
  Sender: FDA-Public Use
  Company Number: FR-ASTELLAS-2011US008710

PATIENT
  Sex: Male

DRUGS (7)
  1. HYDREA [Concomitant]
     Indication: POLYCYTHAEMIA
     Dosage: 500 MG, UID/QD
     Route: 048
  2. COVERAM [Concomitant]
     Indication: PRODUCT USED FOR UNKNOWN INDICATION
     Dosage: 1 DF, UID/QD
     Route: 048
  3. SINTROM [Concomitant]
     Indication: PRODUCT USED FOR UNKNOWN INDICATION
     Dosage: 1 DF, CYCLIC
     Route: 048
  4. ANTIVITAMIN K [Suspect]
     Indication: PRODUCT USED FOR UNKNOWN INDICATION
     Dosage: UNK
     Route: 065
     Dates: end: 20111110
  5. AMLODIPINE BESILATE [Concomitant]
     Indication: PRODUCT USED FOR UNKNOWN INDICATION
     Dosage: UNK
     Route: 065
  6. TARCEVA [Suspect]
     Indication: LUNG NEOPLASM
     Dosage: 150 MG, UID/QD
     Route: 048
     Dates: start: 20111110, end: 20111119
  7. HYPERIUM [Concomitant]
     Indication: PRODUCT USED FOR UNKNOWN INDICATION
     Dosage: 1 MG, UID/QD
     Route: 048

REACTIONS (20)
  - PROTHROMBIN TIME PROLONGED [None]
  - ANGINA PECTORIS [None]
  - OFF LABEL USE [None]
  - DIARRHOEA [None]
  - ASTHENIA [None]
  - DEHYDRATION [None]
  - TACHYCARDIA [None]
  - BONE PAIN [None]
  - WEIGHT DECREASED [None]
  - PORTAL VEIN THROMBOSIS [None]
  - INTERNATIONAL NORMALISED RATIO INCREASED [None]
  - HYPOCAPNIA [None]
  - PULMONARY EMBOLISM [None]
  - HEPATITIS CHOLESTATIC [None]
  - RESPIRATORY FAILURE [None]
  - MALNUTRITION [None]
  - NAUSEA [None]
  - ATRIAL FIBRILLATION [None]
  - RESPIRATORY ALKALOSIS [None]
  - OVERDOSE [None]
